FAERS Safety Report 5458656-0 (Version None)
Quarter: 2007Q3

REPORT INFORMATION
  Report Type: 
  Country: None (occurrence: None)
  Receive Date: 20070919
  Receipt Date: 20070419
  Transmission Date: 20080115
  Serious: Yes (Other)
  Sender: FDA-Public Use
  Company Number: US-ASTRAZENECA-2007UW07708

PATIENT
  Age: 47 Year
  Sex: Male
  Weight: 92.7 kg

DRUGS (3)
  1. SEROQUEL [Suspect]
     Indication: BIPOLAR DISORDER
     Route: 048
     Dates: start: 19970801, end: 20060201
  2. SEROQUEL [Suspect]
     Indication: SLEEP DISORDER
     Route: 048
     Dates: start: 19970801, end: 20060201
  3. RISPERDAL [Suspect]
     Indication: BIPOLAR DISORDER
     Dates: start: 20060201, end: 20061001

REACTIONS (2)
  - HYPERGLYCAEMIA [None]
  - PANCREATITIS [None]
